FAERS Safety Report 7919583-X (Version None)
Quarter: 2011Q4

REPORT INFORMATION
  Report Type: 
  Country: None (occurrence: None)
  Receive Date: 20111117
  Receipt Date: 20110412
  Transmission Date: 20120403
  Serious: No
  Sender: FDA-Public Use
  Company Number: US-BAYER-2011-032983

PATIENT
  Age: 42 Year
  Sex: Female

DRUGS (2)
  1. ESTROGENIC SUBSTANCE [Concomitant]
     Dosage: UNK
  2. CLIMARA PRO [Suspect]
     Indication: OSTEOPOROSIS POSTMENOPAUSAL
     Dosage: 1 PATCH WEEKLY FOR 6 MONTHS
     Route: 062
     Dates: start: 20101101

REACTIONS (3)
  - POLYMENORRHOEA [None]
  - PRODUCT ADHESION ISSUE [None]
  - POSTMENOPAUSAL HAEMORRHAGE [None]
